FAERS Safety Report 4361179-3 (Version None)
Quarter: 2004Q2

REPORT INFORMATION
  Report Type: 
  Country: None (occurrence: None)
  Receive Date: 20040507
  Receipt Date: 20030714
  Transmission Date: 20050107
  Serious: Yes (Other)
  Sender: FDA-Public Use
  Company Number: PHEH2003US05800

PATIENT
  Age: 41 Year
  Sex: Male

DRUGS (2)
  1. TEGRETOL [Suspect]
     Indication: MOOD SWINGS
     Dosage: 1200 MG, QD, ORAL
     Route: 048
     Dates: start: 19860101
  2. PROZAC [Concomitant]

REACTIONS (10)
  - CONFUSIONAL STATE [None]
  - DRY MOUTH [None]
  - EYE PAIN [None]
  - HEADACHE [None]
  - HEPATOCELLULAR DAMAGE [None]
  - INSOMNIA [None]
  - KERATOCONJUNCTIVITIS SICCA [None]
  - PHOTOSENSITIVITY REACTION [None]
  - SEXUAL DYSFUNCTION [None]
  - TOOTH DISORDER [None]
